FAERS Safety Report 9365725 (Version 1)
Quarter: 2013Q2

REPORT INFORMATION
  Report Type: Spontaneous
  Country: GB (occurrence: GB)
  Receive Date: 20130625
  Receipt Date: 20130625
  Transmission Date: 20140414
  Serious: No
  Sender: FDA-Public Use
  Company Number: GB-JNJFOC-20130609700

PATIENT
  Sex: Female

DRUGS (1)
  1. DUROGESIC D-TRANS [Suspect]
     Indication: PAIN
     Route: 062

REACTIONS (4)
  - Inappropriate schedule of drug administration [Unknown]
  - Withdrawal syndrome [Unknown]
  - Incorrect drug administration rate [Unknown]
  - Drug effect decreased [Unknown]
